FAERS Safety Report 6070566-7 (Version None)
Quarter: 2009Q1

REPORT INFORMATION
  Report Type: 
  Country: None (occurrence: None)
  Receive Date: 20090209
  Receipt Date: 20090203
  Transmission Date: 20090719
  Serious: Yes (Other)
  Sender: FDA-Public Use
  Company Number: JP-JNJFOC-20090201517

PATIENT
  Age: 82 Year
  Sex: Male

DRUGS (9)
  1. ITRIZOLE [Suspect]
     Route: 048
  2. ITRIZOLE [Suspect]
     Indication: DRUG USE FOR UNKNOWN INDICATION
     Route: 048
  3. PREDNISOLONE [Concomitant]
     Route: 065
  4. BAKTAR [Concomitant]
     Route: 048
  5. CLARITHROMYCIN [Concomitant]
     Route: 048
  6. AMLODIN [Concomitant]
     Route: 048
  7. INNOLET R [Concomitant]
     Route: 065
  8. TORSEMIDE [Concomitant]
     Route: 048
  9. FUROSEMIDE [Concomitant]
     Route: 065

REACTIONS (2)
  - OEDEMA PERIPHERAL [None]
  - RENAL FAILURE [None]
